FAERS Safety Report 14505928 (Version 1)
Quarter: 2018Q1

REPORT INFORMATION
  Report Type: Spontaneous
  Country: US (occurrence: US)
  Receive Date: 20180207
  Receipt Date: 20180207
  Transmission Date: 20180509
  Serious: No
  Sender: FDA-Public Use
  Company Number: None

PATIENT
  Age: 64 Year
  Sex: Female
  Weight: 207 kg

DRUGS (3)
  1. PROTEC [Concomitant]
  2. ADVIL [Concomitant]
     Active Substance: IBUPROFEN
  3. SULFAMETHOXAZOLE 800MG TRIMETHOPRIM 160MG [Suspect]
     Active Substance: SULFAMETHOXAZOLE\TRIMETHOPRIM
     Indication: PRODUCT USED FOR UNKNOWN INDICATION
     Dosage: ?          QUANTITY:1 TABLET(S);?
     Route: 048
     Dates: start: 20171027, end: 20180112

REACTIONS (17)
  - Nausea [None]
  - Pruritus [None]
  - Urine abnormality [None]
  - Abdominal tenderness [None]
  - Dysuria [None]
  - Influenza [None]
  - Skin ulcer [None]
  - Myalgia [None]
  - Malaise [None]
  - Dizziness [None]
  - Arthralgia [None]
  - Back pain [None]
  - Chills [None]
  - Confusional state [None]
  - Abdominal pain [None]
  - Asthenia [None]
  - Dysphonia [None]

NARRATIVE: CASE EVENT DATE: 20180112
